FAERS Safety Report 22842010 (Version 10)
Quarter: 2024Q1

REPORT INFORMATION
  Report Type: Report from Study
  Country: CA (occurrence: CA)
  Receive Date: 20230821
  Receipt Date: 20240331
  Transmission Date: 20240410
  Serious: Yes (Other)
  Sender: FDA-Public Use
  Company Number: CA-JNJFOC-20220832507

PATIENT
  Age: 47 Year
  Sex: Female
  Weight: 55 kg

DRUGS (6)
  1. REMICADE [Suspect]
     Active Substance: INFLIXIMAB
     Indication: Crohn^s disease
     Dosage: START DATE ALSO GIVEN: 08-OCT-2019
     Route: 041
     Dates: start: 20180810
  2. REMICADE [Suspect]
     Active Substance: INFLIXIMAB
     Dosage: START DATE ALSO GIVEN: 08-OCT-2019.?LAST TREATMENT RECEIVED ON 27-FEB-2023.
     Route: 041
     Dates: start: 20190810
  3. REMICADE [Suspect]
     Active Substance: INFLIXIMAB
     Dosage: START DATE ALSO GIVEN: 08-OCT-2019.?LAST TREATMENT RECEIVED ON 27-FEB-2023.
     Route: 041
     Dates: start: 20190810
  4. REMICADE [Suspect]
     Active Substance: INFLIXIMAB
     Route: 041
  5. REMICADE [Suspect]
     Active Substance: INFLIXIMAB
     Route: 041
     Dates: start: 20240130
  6. BENADRYL [Concomitant]
     Active Substance: DIPHENHYDRAMINE HYDROCHLORIDE
     Indication: Product used for unknown indication
     Dosage: HALF DOSE
     Route: 042

REACTIONS (26)
  - Crohn^s disease [Not Recovered/Not Resolved]
  - Gastrointestinal pain [Unknown]
  - Anal fissure [Unknown]
  - Hyperchlorhydria [Not Recovered/Not Resolved]
  - Petechiae [Not Recovered/Not Resolved]
  - Rectal tenesmus [Unknown]
  - Abdominal distension [Recovering/Resolving]
  - Wound [Recovering/Resolving]
  - Gastrointestinal motility disorder [Not Recovered/Not Resolved]
  - Blister [Recovering/Resolving]
  - Migraine [Recovering/Resolving]
  - Faeces discoloured [Unknown]
  - Abnormal faeces [Unknown]
  - Mucous stools [Unknown]
  - Abdominal pain [Recovering/Resolving]
  - Abdominal pain lower [Not Recovered/Not Resolved]
  - Abdominal pain upper [Not Recovered/Not Resolved]
  - Rash [Recovering/Resolving]
  - Fatigue [Not Recovered/Not Resolved]
  - Constipation [Not Recovered/Not Resolved]
  - Nausea [Not Recovered/Not Resolved]
  - SARS-CoV-2 test positive [Recovered/Resolved]
  - Erythema [Recovered/Resolved]
  - Hypertension [Unknown]
  - Off label use [Unknown]
  - Decreased appetite [Not Recovered/Not Resolved]

NARRATIVE: CASE EVENT DATE: 20210101
